FAERS Safety Report 5807234-X (Version None)
Quarter: 2008Q3

REPORT INFORMATION
  Report Type: 
  Country: None (occurrence: None)
  Receive Date: 20080709
  Receipt Date: 20080709
  Transmission Date: 20090109
  Serious: No
  Sender: FDA-Public Use
  Company Number: None

PATIENT
  Age: 34 Year
  Sex: Female
  Weight: 49.8957 kg

DRUGS (1)
  1. LOESTRIN 1.5/30 [Suspect]
     Indication: OVARIAN CYST
     Dosage: EVERY DAY
     Dates: start: 20070301, end: 20070801

REACTIONS (3)
  - AMENORRHOEA [None]
  - HOT FLUSH [None]
  - OVARIAN FAILURE [None]
